FAERS Safety Report 6447370-0 (Version None)
Quarter: 2009Q4

REPORT INFORMATION
  Report Type: 
  Country: None (occurrence: None)
  Receive Date: 20091119
  Receipt Date: 20091109
  Transmission Date: 20100525
  Serious: Yes (Hospitalization)
  Sender: FDA-Public Use
  Company Number: KR-ELI_LILLY_AND_COMPANY-KR200910002348

PATIENT
  Age: 65 Year
  Sex: Female

DRUGS (8)
  1. HUMALOG MIX 75/25 [Suspect]
     Indication: TYPE 2 DIABETES MELLITUS
     Dosage: UNK, UNKNOWN
     Route: 058
     Dates: start: 20060101, end: 20090801
  2. HUMALOG MIX 75/25 [Suspect]
     Dosage: 10 U, EACH MORNING
     Route: 058
     Dates: start: 20090808, end: 20091010
  3. HUMALOG MIX 75/25 [Suspect]
     Dosage: 20 U, EACH EVENING
     Route: 058
     Dates: start: 20090808, end: 20091010
  4. HUMALOG MIX 75/25 [Suspect]
     Dosage: 30 U, EACH MORNING
     Route: 058
     Dates: start: 20091012
  5. HUMALOG MIX 75/25 [Suspect]
     Dosage: 10 U, EACH EVENING
     Route: 058
     Dates: start: 20091012
  6. BYETTA [Concomitant]
     Indication: TYPE 2 DIABETES MELLITUS
     Dosage: 5 UG, 2/D
     Route: 058
     Dates: start: 20090514, end: 20090619
  7. BYETTA [Concomitant]
     Dosage: 10 UG, 2/D
     Route: 058
     Dates: start: 20090620, end: 20091005
  8. BYETTA [Concomitant]
     Dosage: 10 UG, 2/D
     Route: 058
     Dates: start: 20091012

REACTIONS (4)
  - BLOOD GLUCOSE INCREASED [None]
  - DEAFNESS UNILATERAL [None]
  - SUDDEN HEARING LOSS [None]
  - TINNITUS [None]
